FAERS Safety Report 13744630 (Version 5)
Quarter: 2022Q1

REPORT INFORMATION
  Report Type: Report from Study
  Country: CN (occurrence: None)
  Receive Date: 20170712
  Receipt Date: 20220223
  Transmission Date: 20220423
  Serious: Yes (Hospitalization)
  Sender: FDA-Public Use
  Company Number: CN-ROCHE-1957787

PATIENT
  Age: 64 Year
  Sex: Female
  Weight: 62 kg

DRUGS (8)
  1. ALECTINIB [Suspect]
     Active Substance: ALECTINIB
     Indication: Non-small cell lung cancer
     Dosage: MOST RECENT ALECTINIB DOSE: 28/JUN/2017
     Route: 048
     Dates: start: 20170309
  2. NIFEDIPINE [Concomitant]
     Active Substance: NIFEDIPINE
     Indication: Hypertension
  3. LIDOCAINE [Concomitant]
     Active Substance: LIDOCAINE
     Indication: Anaesthesia
     Dates: start: 20170629, end: 20170629
  4. EPINEPHRINE [Concomitant]
     Active Substance: EPINEPHRINE
     Indication: Prophylaxis
     Dates: start: 20170629, end: 20170629
  5. CAPTOPRIL [Concomitant]
     Active Substance: CAPTOPRIL
     Indication: Hypertension
     Dates: start: 20170704, end: 20170704
  6. PIPERACILLIN SODIUM\TAZOBACTAM SODIUM [Concomitant]
     Active Substance: PIPERACILLIN SODIUM\TAZOBACTAM SODIUM
     Indication: Infection
     Dates: start: 20170629, end: 20170710
  7. PANTOPRAZOLE SODIUM [Concomitant]
     Active Substance: PANTOPRAZOLE SODIUM
     Indication: Prophylaxis
     Dates: start: 20170710, end: 20171020
  8. CALTRATE [Concomitant]
     Active Substance: CALCIUM CARBONATE
     Indication: Osteoporosis prophylaxis
     Dates: start: 20170710, end: 20171020

REACTIONS (1)
  - Interstitial lung disease [Recovering/Resolving]

NARRATIVE: CASE EVENT DATE: 20170629
